FAERS Safety Report 7469699-X (Version None)
Quarter: 2011Q2

REPORT INFORMATION
  Report Type: 
  Country: None (occurrence: None)
  Receive Date: 20110510
  Receipt Date: 20110505
  Transmission Date: 20111010
  Serious: Yes (Hospitalization)
  Sender: FDA-Public Use
  Company Number: GB-TYCO HEALTHCARE/MALLINCKRODT-T201100895

PATIENT
  Sex: Female
  Weight: 64 kg

DRUGS (2)
  1. VENTOLIN [Concomitant]
     Indication: ASTHMA
     Dosage: UNK
  2. OPTIRAY 300 [Suspect]
     Indication: UROGRAM
     Dosage: 69 ML, SINGLE
     Route: 042
     Dates: start: 20110403, end: 20110403

REACTIONS (1)
  - CHEST DISCOMFORT [None]
